FAERS Safety Report 10182113 (Version 1)
Quarter: 2014Q2

REPORT INFORMATION
  Report Type: Spontaneous
  Country: US (occurrence: US)
  Receive Date: 20140520
  Receipt Date: 20140520
  Transmission Date: 20141212
  Serious: Yes (Hospitalization, Other)
  Sender: FDA-Public Use
  Company Number: US-ORION CORPORATION ORION PHARMA-ENT 2014-0065

PATIENT
  Age: 38 Year
  Sex: Male

DRUGS (5)
  1. ENTACAPONE [Suspect]
     Indication: PARKINSON^S DISEASE
     Route: 065
  2. ENTACAPONE [Suspect]
     Dosage: 1 TABLET AT NIGHT
     Route: 065
  3. LEVODOPA-CARBIDOPA [Suspect]
     Indication: PARKINSON^S DISEASE
     Dosage: STRENGTH: 100/25
     Route: 065
  4. LEVODOPA-CARBIDOPA [Suspect]
     Dosage: STRENGTH:  100/25
     Route: 065
  5. RASAGILINE [Suspect]
     Indication: PARKINSON^S DISEASE
     Route: 065

REACTIONS (4)
  - Drug effect decreased [Recovered/Resolved]
  - Dyskinesia [Recovered/Resolved]
  - Cerebrovascular accident [Recovered/Resolved]
  - Ballismus [Recovered/Resolved]
